FAERS Safety Report 25282492 (Version 1)
Quarter: 2025Q2

REPORT INFORMATION
  Report Type: Spontaneous
  Country: US (occurrence: US)
  Receive Date: 20250508
  Receipt Date: 20250508
  Transmission Date: 20250717
  Serious: No
  Sender: MYLAN
  Company Number: US-MYLANLABS-2025M1037767

PATIENT
  Sex: Female

DRUGS (12)
  1. FENTANYL [Suspect]
     Active Substance: FENTANYL
     Indication: Product used for unknown indication
  2. FENTANYL [Suspect]
     Active Substance: FENTANYL
     Route: 065
  3. FENTANYL [Suspect]
     Active Substance: FENTANYL
     Route: 065
  4. FENTANYL [Suspect]
     Active Substance: FENTANYL
  5. MORPHINE [Suspect]
     Active Substance: MORPHINE
     Indication: Product used for unknown indication
  6. MORPHINE [Suspect]
     Active Substance: MORPHINE
     Route: 065
  7. MORPHINE [Suspect]
     Active Substance: MORPHINE
     Route: 065
  8. MORPHINE [Suspect]
     Active Substance: MORPHINE
  9. HEROIN [Suspect]
     Active Substance: DIAMORPHINE
     Indication: Product used for unknown indication
  10. HEROIN [Suspect]
     Active Substance: DIAMORPHINE
     Route: 065
  11. HEROIN [Suspect]
     Active Substance: DIAMORPHINE
     Route: 065
  12. HEROIN [Suspect]
     Active Substance: DIAMORPHINE

REACTIONS (1)
  - Maternal exposure during pregnancy [Recovered/Resolved]
